FAERS Safety Report 24733449 (Version 1)
Quarter: 2024Q4

REPORT INFORMATION
  Report Type: Spontaneous
  Country: BR (occurrence: BR)
  Receive Date: 20241213
  Receipt Date: 20241213
  Transmission Date: 20250115
  Serious: Yes (Death, Hospitalization)
  Sender: ELI LILLY AND COMPANY
  Company Number: BR-Merck Healthcare KGaA-2024064319

PATIENT
  Age: 83 Year
  Sex: Female
  Weight: 65 kg

DRUGS (1)
  1. ERBITUX [Suspect]
     Active Substance: CETUXIMAB
     Indication: Squamous cell carcinoma
     Dosage: 632 MG, UNKNOWN
     Route: 042
     Dates: start: 20241106

REACTIONS (6)
  - Cardio-respiratory arrest [Fatal]
  - Fall [Not Recovered/Not Resolved]
  - Agitation [Not Recovered/Not Resolved]
  - Tremor [Not Recovered/Not Resolved]
  - Dyspnoea [Not Recovered/Not Resolved]
  - Vomiting [Not Recovered/Not Resolved]

NARRATIVE: CASE EVENT DATE: 20241106
